FAERS Safety Report 13599274 (Version 1)
Quarter: 2017Q2

REPORT INFORMATION
  Report Type: Spontaneous
  Country: US (occurrence: US)
  Receive Date: 20170531
  Receipt Date: 20170531
  Transmission Date: 20170830
  Serious: No
  Sender: FDA-Public Use
  Company Number: US-BAXALTA-2017BLT004518

PATIENT
  Age: 60 Year
  Sex: Female

DRUGS (1)
  1. CUVITRU [Suspect]
     Active Substance: HUMAN IMMUNOGLOBULIN G
     Indication: IMMUNODEFICIENCY COMMON VARIABLE
     Dosage: 16 G, UNK
     Route: 065
     Dates: start: 20170407, end: 20170414

REACTIONS (4)
  - Influenza like illness [Unknown]
  - Tremor [Unknown]
  - Rash generalised [Unknown]
  - Chills [Unknown]

NARRATIVE: CASE EVENT DATE: 20170408
